FAERS Safety Report 13871909 (Version 1)
Quarter: 2017Q3

REPORT INFORMATION
  Report Type: Spontaneous
  Country: None (occurrence: NO)
  Receive Date: 20170816
  Receipt Date: 20170816
  Transmission Date: 20171127
  Serious: Yes (Other)
  Sender: FDA-Public Use
  Company Number: NO-MEDAC PHARMA, INC.-2024687

PATIENT
  Sex: Male

DRUGS (6)
  1. REMICADE [Suspect]
     Active Substance: INFLIXIMAB
     Dates: start: 200903, end: 200904
  2. ACITRETIN. [Suspect]
     Active Substance: ACITRETIN
     Dates: start: 199902
  3. ENBREL [Suspect]
     Active Substance: ETANERCEPT
     Dates: start: 2005, end: 2009
  4. SANDIMMUNE [Suspect]
     Active Substance: CYCLOSPORINE
     Dates: start: 2001
  5. METHOTREXATE. [Suspect]
     Active Substance: METHOTREXATE
     Indication: PRODUCT USED FOR UNKNOWN INDICATION
     Dates: start: 199802
  6. STELARA [Suspect]
     Active Substance: USTEKINUMAB
     Dates: start: 2009, end: 2010

REACTIONS (2)
  - Drug effect decreased [Unknown]
  - Osteonecrosis [Not Recovered/Not Resolved]

NARRATIVE: CASE EVENT DATE: 201602
